FAERS Safety Report 20840266 (Version 1)
Quarter: 2022Q2

REPORT INFORMATION
  Report Type: Spontaneous
  Country: JP (occurrence: JP)
  Receive Date: 20220517
  Receipt Date: 20220517
  Transmission Date: 20220721
  Serious: Yes (Disabling)
  Sender: FDA-Public Use
  Company Number: JP-GUERBET-JP-20220055

PATIENT
  Age: 81 Year
  Sex: Male

DRUGS (5)
  1. LIPIODOL [Suspect]
     Active Substance: ETHIODIZED OIL
     Indication: Therapeutic embolisation
     Dosage: 0.5 ML OF A HIGHLY DILUTED SOLUTION (5%) OF NBCA-IODIZED OIL MIXTURE
     Route: 013
  2. LIPIODOL [Suspect]
     Active Substance: ETHIODIZED OIL
     Dosage: 0.7 ML OF A HIGHLY DILUTED SOLUTION (10%) OF NBCA-IODIZED OIL MIXTURE
     Route: 013
  3. ENBUCRILATE [Concomitant]
     Active Substance: ENBUCRILATE
     Indication: Therapeutic embolisation
     Dosage: 0.5 ML OF A HIGHLY DILUTED SOLUTION (5%) OF NBCA-IODIZED OIL MIXTURE
     Route: 013
  4. ENBUCRILATE [Concomitant]
     Active Substance: ENBUCRILATE
     Dosage: 0.7 ML OF A HIGHLY DILUTED SOLUTION (10%) OF NBCA-IODIZED OIL MIXTURE
     Route: 013
  5. CLOPIDOGREL [Concomitant]
     Active Substance: CLOPIDOGREL BISULFATE
     Indication: Angiopathy
     Route: 065

REACTIONS (2)
  - Lumbosacral plexopathy [Recovered/Resolved]
  - Product use in unapproved indication [Recovered/Resolved]
